FAERS Safety Report 5099250-3 (Version None)
Quarter: 2006Q3

REPORT INFORMATION
  Report Type: 
  Country: None (occurrence: None)
  Receive Date: 20060731
  Receipt Date: 20060531
  Transmission Date: 20061208
  Serious: Yes (Other)
  Sender: FDA-Public Use
  Company Number: US-2006-013848

PATIENT
  Age: 48 Year
  Sex: Female
  Weight: 52 kg

DRUGS (1)
  1. MAGNEVIST [Suspect]
     Indication: ANGIOGRAM
     Dosage: 42 ML, 1 DOSE, INTRAVENOUS
     Route: 042
     Dates: start: 20060529, end: 20060529

REACTIONS (3)
  - HYPOAESTHESIA ORAL [None]
  - SWOLLEN TONGUE [None]
  - URTICARIA LOCALISED [None]
